FAERS Safety Report 23487011 (Version 1)
Quarter: 2024Q1

REPORT INFORMATION
  Report Type: Spontaneous
  Country: US (occurrence: None)
  Receive Date: 20240205
  Receipt Date: 20240205
  Transmission Date: 20240409
  Serious: Yes (Other)
  Sender: FDA-Public Use
  Company Number: None

PATIENT
  Age: 72 Year
  Sex: Male
  Weight: 64 kg

DRUGS (13)
  1. LOKELMA [Suspect]
     Active Substance: SODIUM ZIRCONIUM CYCLOSILICATE
     Indication: IgA nephropathy
     Dosage: FREQUENCY : DAILY;?
     Route: 048
     Dates: start: 20230926, end: 20240122
  2. LOKELMA [Suspect]
     Active Substance: SODIUM ZIRCONIUM CYCLOSILICATE
     Indication: IgA nephropathy
  3. ASPIRIN 81MG EC LOW DOSE TABLETS [Concomitant]
  4. ALLOPURINOL 300MG TABLETS [Concomitant]
  5. AMLODIPINE BESYLATE [Concomitant]
     Active Substance: AMLODIPINE BESYLATE
  6. CARVEDILOL 12.5MG TABLETS [Concomitant]
  7. DULOXETINE [Concomitant]
     Active Substance: DULOXETINE
  8. FUROSEMIDE [Concomitant]
     Active Substance: FUROSEMIDE
  9. PANTOPRAZOLE [Concomitant]
     Active Substance: PANTOPRAZOLE
  10. PREDNISONE 1MG TABLETS [Concomitant]
  11. ROSUVASTATIN [Concomitant]
     Active Substance: ROSUVASTATIN
  12. TAMSULOSIN [Concomitant]
     Active Substance: TAMSULOSIN
  13. VITAMIN D 1,000IU H/PTNCY CAPSULES [Concomitant]

REACTIONS (3)
  - Joint swelling [None]
  - Therapy interrupted [None]
  - Product communication issue [None]

NARRATIVE: CASE EVENT DATE: 20240205
